FAERS Safety Report 18436007 (Version 3)
Quarter: 2021Q2

REPORT INFORMATION
  Report Type: Report from Study
  Country: CA (occurrence: CA)
  Receive Date: 20201028
  Receipt Date: 20210417
  Transmission Date: 20210717
  Serious: Yes (Other)
  Sender: FDA-Public Use
  Company Number: NVSC2020CA287969

PATIENT
  Sex: Female

DRUGS (3)
  1. BEOVU [Suspect]
     Active Substance: BROLUCIZUMAB-DBLL
     Indication: NEOVASCULAR AGE-RELATED MACULAR DEGENERATION
     Dosage: 1 DF (6MG/0.05ML)
     Route: 031
     Dates: start: 20200807
  2. BEOVU [Suspect]
     Active Substance: BROLUCIZUMAB-DBLL
     Dosage: 1 DF (6MG/0.05ML)
     Route: 031
     Dates: start: 202010
  3. BEOVU [Suspect]
     Active Substance: BROLUCIZUMAB-DBLL
     Indication: CYSTOID MACULAR OEDEMA
     Dosage: 1 DF (6MG/0.05ML)
     Route: 031
     Dates: start: 20200925

REACTIONS (3)
  - Deep vein thrombosis [Recovered/Resolved]
  - Malaise [Unknown]
  - Product use in unapproved indication [Unknown]
